FAERS Safety Report 17906210 (Version 1)
Quarter: 2020Q2

REPORT INFORMATION
  Report Type: Spontaneous
  Country: US (occurrence: US)
  Receive Date: 20200616
  Receipt Date: 20200616
  Transmission Date: 20200714
  Serious: No
  Sender: FDA-Public Use
  Company Number: US-ROCHE-2350836

PATIENT
  Sex: Female

DRUGS (14)
  1. PENTOXYFYLLINE [Concomitant]
     Active Substance: PENTOXIFYLLINE
  2. ASPIRIN [ACETYLSALICYLIC ACID] [Concomitant]
     Active Substance: ASPIRIN
  3. LORATADINE. [Concomitant]
     Active Substance: LORATADINE
  4. LEVOTHYROXINE SODIUM. [Concomitant]
     Active Substance: LEVOTHYROXINE SODIUM
  5. METHOCARBAMOL. [Concomitant]
     Active Substance: METHOCARBAMOL
  6. METFORMIN [Concomitant]
     Active Substance: METFORMIN HYDROCHLORIDE
     Route: 065
  7. LISINOPRIL. [Concomitant]
     Active Substance: LISINOPRIL
  8. OSENI [Concomitant]
     Active Substance: ALOGLIPTIN BENZOATE\PIOGLITAZONE HYDROCHLORIDE
  9. ATENOLOL. [Concomitant]
     Active Substance: ATENOLOL
  10. GABAPENTIN. [Concomitant]
     Active Substance: GABAPENTIN
  11. ACTEMRA [Suspect]
     Active Substance: TOCILIZUMAB
     Indication: RHEUMATOID ARTHRITIS
     Route: 058
     Dates: start: 20190426
  12. LIPITOR [Concomitant]
     Active Substance: ATORVASTATIN CALCIUM
  13. METHOTREXATE. [Concomitant]
     Active Substance: METHOTREXATE
  14. PREDNISONE. [Concomitant]
     Active Substance: PREDNISONE

REACTIONS (1)
  - Candida infection [Unknown]
